FAERS Safety Report 13402201 (Version 3)
Quarter: 2017Q2

REPORT INFORMATION
  Report Type: Report from Study
  Country: GB (occurrence: GB)
  Receive Date: 20170404
  Receipt Date: 20170526
  Transmission Date: 20170830
  Serious: Yes (Other)
  Sender: FDA-Public Use
  Company Number: GB-JNJFOC-20170334331

PATIENT
  Age: 70 Year
  Sex: Female
  Weight: 83 kg

DRUGS (9)
  1. WARFARIN [Concomitant]
     Active Substance: WARFARIN
     Dosage: 28 TABLET
     Route: 065
     Dates: start: 20160715, end: 20170331
  2. LISINOPRIL. [Concomitant]
     Active Substance: LISINOPRIL
     Indication: BLOOD PRESSURE MEASUREMENT
     Dosage: 28 TABLET??TAKE 1 EACH NIGHT
     Route: 065
     Dates: start: 20160715, end: 20170331
  3. WARFARIN [Concomitant]
     Active Substance: WARFARIN
     Dosage: 56 TABLET
     Route: 065
     Dates: start: 20160715, end: 20170301
  4. BISOPROLOL [Concomitant]
     Active Substance: BISOPROLOL
     Indication: BLOOD PRESSURE MEASUREMENT
     Dosage: 28 TABLET
     Route: 065
     Dates: start: 20160715, end: 20170331
  5. ESCITALOPRAM [Concomitant]
     Active Substance: ESCITALOPRAM OXALATE
     Indication: DEPRESSED MOOD
     Dosage: 28 TABLET
     Route: 065
     Dates: start: 20160715, end: 20170331
  6. ROSUVASTATIN. [Concomitant]
     Active Substance: ROSUVASTATIN
     Dosage: 28 TABLET
     Route: 065
     Dates: start: 20160715, end: 20170331
  7. STELARA [Suspect]
     Active Substance: USTEKINUMAB
     Indication: PSORIASIS
     Route: 058
     Dates: start: 20150202
  8. GLYCERYL TRINITRATE [Concomitant]
     Active Substance: NITROGLYCERIN
     Indication: ANGINA PECTORIS
     Dosage: 180 DOSE??TWO PUFFS UNDER THE TONGUE WHEN REQUIRED FOR ANGINA
     Route: 065
     Dates: start: 20160715
  9. LEVOTHYROXINE SODIUM. [Concomitant]
     Active Substance: LEVOTHYROXINE SODIUM
     Indication: HYPOTHYROIDISM
     Dosage: 28 TABLET ??ONE TABLET EACH MORNING
     Route: 065

REACTIONS (1)
  - Lower respiratory tract infection [Recovered/Resolved]

NARRATIVE: CASE EVENT DATE: 20170315
